FAERS Safety Report 11226608 (Version 3)
Quarter: 2016Q2

REPORT INFORMATION
  Report Type: Report from Study
  Country: US (occurrence: US)
  Receive Date: 20150630
  Receipt Date: 20160614
  Transmission Date: 20160815
  Serious: Yes (Hospitalization, Other)
  Sender: FDA-Public Use
  Company Number: US-SA-2015SA041415

PATIENT
  Age: 73 Year
  Sex: Female
  Weight: 63.95 kg

DRUGS (15)
  1. NEURONTIN [Concomitant]
     Active Substance: GABAPENTIN
     Indication: PARAESTHESIA
  2. AUBAGIO [Suspect]
     Active Substance: TERIFLUNOMIDE
     Indication: MULTIPLE SCLEROSIS
     Route: 048
     Dates: start: 20150122, end: 201605
  3. EXFORGE [Concomitant]
     Active Substance: AMLODIPINE BESYLATE\VALSARTAN
     Indication: BLOOD PRESSURE MEASUREMENT
  4. POTASSIUM [Concomitant]
     Active Substance: POTASSIUM
  5. VITAMIN B12 [Concomitant]
     Active Substance: CYANOCOBALAMIN
  6. HYDROCHLOROTHIAZIDE. [Concomitant]
     Active Substance: HYDROCHLOROTHIAZIDE
     Indication: BLOOD PRESSURE MEASUREMENT
  7. CALCIUM [Concomitant]
     Active Substance: CALCIUM
  8. CALCIUM CARBONATE. [Concomitant]
     Active Substance: CALCIUM CARBONATE
  9. DORZOLAMIDE [Concomitant]
     Active Substance: DORZOLAMIDE
  10. XALATAN [Concomitant]
     Active Substance: LATANOPROST
  11. VITAMIN D [Concomitant]
     Active Substance: CHOLECALCIFEROL
  12. METFORMIN [Concomitant]
     Active Substance: METFORMIN HYDROCHLORIDE
     Indication: DIABETES MELLITUS
  13. ZOLOFT [Concomitant]
     Active Substance: SERTRALINE HYDROCHLORIDE
  14. MUCINEX [Concomitant]
     Active Substance: GUAIFENESIN
  15. AUBAGIO [Suspect]
     Active Substance: TERIFLUNOMIDE
     Indication: MULTIPLE SCLEROSIS
     Route: 048
     Dates: start: 20150122, end: 201605

REACTIONS (6)
  - Hand fracture [Unknown]
  - Mydriasis [Unknown]
  - Amnesia [Unknown]
  - Fall [Unknown]
  - Drug dose omission [Unknown]
  - Pain [Unknown]

NARRATIVE: CASE EVENT DATE: 2015
